FAERS Safety Report 8226093-1 (Version None)
Quarter: 2012Q1

REPORT INFORMATION
  Report Type: 
  Country: None (occurrence: None)
  Receive Date: 20120321
  Receipt Date: 20120313
  Transmission Date: 20120608
  Serious: Yes (Other)
  Sender: FDA-Public Use
  Company Number: US-FRI-1000029054

PATIENT
  Sex: Female

DRUGS (3)
  1. VIIBRYD [Suspect]
     Dosage: 10 MG
     Route: 048
     Dates: start: 20120202, end: 20120101
  2. VIIBRYD [Suspect]
     Dosage: 40 MG
     Route: 048
     Dates: start: 20120101
  3. VIIBRYD [Suspect]
     Dosage: 20 MG
     Route: 048
     Dates: start: 20120101, end: 20120101

REACTIONS (1)
  - SUICIDE ATTEMPT [None]
